FAERS Safety Report 9384736 (Version 2)
Quarter: 2013Q3

REPORT INFORMATION
  Report Type: Spontaneous
  Country: US (occurrence: US)
  Receive Date: 20130705
  Receipt Date: 20130821
  Transmission Date: 20140515
  Serious: Yes (Other)
  Sender: FDA-Public Use
  Company Number: CHPA2013US010627

PATIENT
  Age: 62 Year
  Sex: Male

DRUGS (2)
  1. EXCEDRIN TENSION HEADACHE [Suspect]
     Indication: PAIN
     Dosage: UNK, UNK
     Route: 048
  2. EXCEDRIN TENSION HEADACHE [Suspect]
     Indication: HEADACHE

REACTIONS (1)
  - Paraplegia [Not Recovered/Not Resolved]
